FAERS Safety Report 25478138 (Version 1)
Quarter: 2025Q2

REPORT INFORMATION
  Report Type: Spontaneous
  Country: FR (occurrence: FR)
  Receive Date: 20250625
  Receipt Date: 20250625
  Transmission Date: 20250717
  Serious: Yes (Other)
  Sender: TAKEDA
  Company Number: FR-TAKEDA-2025TUS056751

PATIENT
  Sex: Female

DRUGS (1)
  1. ADZYNMA [Suspect]
     Active Substance: ADAMTS13, RECOMBINANT-KRHN
     Indication: Product used for unknown indication

REACTIONS (2)
  - Nervous system disorder [Unknown]
  - Pain in extremity [Unknown]
